FAERS Safety Report 8135870-7 (Version None)
Quarter: 2012Q1

REPORT INFORMATION
  Report Type: 
  Country: None (occurrence: None)
  Receive Date: 20120214
  Receipt Date: 20120203
  Transmission Date: 20120608
  Serious: Yes (Hospitalization)
  Sender: FDA-Public Use
  Company Number: FR-GLAXOSMITHKLINE-B0779074A

PATIENT
  Sex: Male
  Weight: 110 kg

DRUGS (12)
  1. CANDESARTAN CILEXETIL [Concomitant]
     Dosage: 32MG PER DAY
     Route: 065
  2. VOLTAREN [Suspect]
     Indication: PRODUCT USED FOR UNKNOWN INDICATION
     Route: 061
     Dates: end: 20120118
  3. KERLONE [Concomitant]
     Dosage: 10MG IN THE MORNING
     Route: 065
  4. POTASSIUM CHLORIDE [Concomitant]
     Dosage: 1000MG PER DAY
     Route: 065
  5. LASIX [Concomitant]
     Dosage: 40MG IN THE MORNING
     Route: 065
  6. ZOLPIDEM [Concomitant]
     Dosage: 10MG AT NIGHT
     Route: 065
  7. PREVISCAN [Suspect]
     Indication: ATRIAL FIBRILLATION
     Route: 048
     Dates: end: 20120118
  8. METFORMIN HYDROCHLORIDE [Concomitant]
     Dosage: 1UNIT TWICE PER DAY
     Route: 065
  9. OMEPRAZOLE [Concomitant]
     Dosage: 20MG PER DAY
     Route: 065
  10. LERCANIDIPINE [Concomitant]
     Dosage: 20MG IN THE MORNING
     Route: 065
  11. MEDIATENSYL [Concomitant]
     Dosage: 60MG THREE TIMES PER DAY
     Route: 065
  12. CLOBETASOL PROPIONATE [Suspect]
     Indication: PRODUCT USED FOR UNKNOWN INDICATION
     Route: 061
     Dates: end: 20120118

REACTIONS (4)
  - MELAENA [None]
  - HAEMATEMESIS [None]
  - NECROTISING GASTRITIS [None]
  - SHOCK HAEMORRHAGIC [None]
